FAERS Safety Report 5150737-4 (Version None)
Quarter: 2006Q4

REPORT INFORMATION
  Report Type: 
  Country: None (occurrence: None)
  Receive Date: 20061108
  Receipt Date: 20061020
  Transmission Date: 20070319
  Serious: Yes (Hospitalization, Other)
  Sender: FDA-Public Use
  Company Number: 2006129578

PATIENT
  Age: 71 Year
  Sex: Male

DRUGS (7)
  1. GABAPENTIN [Suspect]
     Indication: HERPES ZOSTER
  2. GABAPENTIN [Suspect]
     Indication: NEURALGIA
  3. GABAPENTIN [Suspect]
     Indication: NEUROPATHY
  4. LYRICA [Suspect]
     Indication: HERPES ZOSTER
     Dosage: 300 MG (75 MG, 4 IN 1 D), ORAL
     Route: 048
  5. LYRICA [Suspect]
     Indication: NEURALGIA
     Dosage: 300 MG (75 MG, 4 IN 1 D), ORAL
     Route: 048
  6. LYRICA [Suspect]
     Indication: NEUROPATHY
     Dosage: 300 MG (75 MG, 4 IN 1 D), ORAL
     Route: 048
  7. INSULIN (INSULIN) [Concomitant]

REACTIONS (2)
  - ABASIA [None]
  - OEDEMA PERIPHERAL [None]
